FAERS Safety Report 10466795 (Version 1)
Quarter: 2014Q3

REPORT INFORMATION
  Report Type: Spontaneous
  Country: US (occurrence: None)
  Receive Date: 20140919
  Receipt Date: 20140919
  Transmission Date: 20150326
  Serious: Yes (Hospitalization)
  Sender: FDA-Public Use
  Company Number: None

PATIENT
  Age: 54 Year
  Sex: Male

DRUGS (7)
  1. LEUCOVORIN CALCIUM. [Suspect]
     Active Substance: LEUCOVORIN CALCIUM
  2. NEULASTA [Concomitant]
     Active Substance: PEGFILGRASTIM
  3. ELOXATIN [Suspect]
     Active Substance: OXALIPLATIN
  4. LOMOTIL [Concomitant]
     Active Substance: ATROPINE SULFATE\DIPHENOXYLATE HYDROCHLORIDE
  5. ZOFRAN [Concomitant]
     Active Substance: ONDANSETRON HYDROCHLORIDE
  6. 5-FLUOROURACIL (5-FU) [Suspect]
     Active Substance: FLUOROURACIL
  7. IMODIUM [Concomitant]
     Active Substance: LOPERAMIDE HYDROCHLORIDE

REACTIONS (8)
  - Calculus ureteric [None]
  - Hydronephrosis [None]
  - Back pain [None]
  - Abdominal pain [None]
  - Drug ineffective [None]
  - Hydroureter [None]
  - Vomiting [None]
  - Nausea [None]

NARRATIVE: CASE EVENT DATE: 20140903
